FAERS Safety Report 17667562 (Version 1)
Quarter: 2020Q2

REPORT INFORMATION
  Report Type: Spontaneous
  Country: US (occurrence: US)
  Receive Date: 20200414
  Receipt Date: 20200414
  Transmission Date: 20200713
  Serious: Yes (Hospitalization)
  Sender: FDA-Public Use
  Company Number: US-SUNOVION-2020SUN001138

PATIENT
  Sex: Male
  Weight: 181.4 kg

DRUGS (1)
  1. LATUDA [Suspect]
     Active Substance: LURASIDONE HYDROCHLORIDE
     Indication: BIPOLAR DISORDER
     Dosage: UNK, BID (TWICE A DAY, 2 TABS A DAY)
     Route: 048

REACTIONS (3)
  - Malaise [Unknown]
  - Abnormal behaviour [Not Recovered/Not Resolved]
  - Off label use [Unknown]
